FAERS Safety Report 25904726 (Version 1)
Quarter: 2025Q4

REPORT INFORMATION
  Report Type: Spontaneous
  Country: AU (occurrence: AU)
  Receive Date: 20251010
  Receipt Date: 20251010
  Transmission Date: 20260117
  Serious: Yes (Other)
  Sender: CADILA
  Company Number: AU-CPL-005821

PATIENT

DRUGS (2)
  1. RIVASTIGMINE [Interacting]
     Active Substance: RIVASTIGMINE
     Indication: Anaesthesia
  2. SUCCINYLCHOLINE [Interacting]
     Active Substance: SUCCINYLCHOLINE
     Indication: Anaesthesia

REACTIONS (2)
  - Drug interaction [Unknown]
  - Ictal central apnoea [Unknown]
